FAERS Safety Report 15745426 (Version 1)
Quarter: 2018Q4

REPORT INFORMATION
  Report Type: Spontaneous
  Country: FR (occurrence: FR)
  Receive Date: 20181220
  Receipt Date: 20181220
  Transmission Date: 20190205
  Serious: Yes (Other)
  Sender: FDA-Public Use
  Company Number: FR-ALLERGAN-1857711US

PATIENT
  Age: 31 Year
  Sex: Male
  Weight: 77 kg

DRUGS (1)
  1. SILODOSIN - BP [Suspect]
     Active Substance: SILODOSIN
     Indication: RENAL COLIC
     Dosage: 8 MG, QD
     Route: 048
     Dates: start: 20181114, end: 20181118

REACTIONS (2)
  - Off label use [Unknown]
  - Aspermia [Unknown]

NARRATIVE: CASE EVENT DATE: 20181114
